FAERS Safety Report 8911215 (Version 2)
Quarter: 2013Q1

REPORT INFORMATION
  Report Type: Spontaneous
  Country: US (occurrence: US)
  Receive Date: 20121116
  Receipt Date: 20130311
  Transmission Date: 20140127
  Serious: Yes (Hospitalization)
  Sender: FDA-Public Use
  Company Number: US-BRISTOL-MYERS SQUIBB COMPANY-16710287

PATIENT
  Age: 59 Year
  Sex: Female
  Weight: 78 kg

DRUGS (1)
  1. ABATACEPT SUBQ INJECTION 125MG/ML [Suspect]
     Indication: RHEUMATOID ARTHRITIS
     Dosage: INITIALLY ON IV ROUTE FOR 5 YEARS,LAST INJ ON 26SEP12?LAST DOSE-04MAR13?NO OF DOSES-11
     Route: 058
     Dates: start: 20120613

REACTIONS (3)
  - Kidney infection [Unknown]
  - Intervertebral disc disorder [Unknown]
  - Drug ineffective [Unknown]
